FAERS Safety Report 9241714 (Version 4)
Quarter: 2013Q3

REPORT INFORMATION
  Report Type: Spontaneous
  Country: US (occurrence: US)
  Receive Date: 20130419
  Receipt Date: 20130725
  Transmission Date: 20140515
  Serious: Yes (Other)
  Sender: FDA-Public Use
  Company Number: US-JNJFOC-20130405198

PATIENT
  Sex: Female
  Weight: 94.8 kg

DRUGS (14)
  1. REMICADE [Suspect]
     Indication: PSORIASIS
     Route: 042
     Dates: start: 2013, end: 2013
  2. REMICADE [Suspect]
     Indication: PSORIASIS
     Dosage: 7 UNITS
     Route: 042
     Dates: start: 2012
  3. REMICADE [Suspect]
     Indication: PSORIASIS
     Dosage: STARTED 10 YEARS AGO
     Route: 042
  4. REMICADE [Suspect]
     Indication: PSORIATIC ARTHROPATHY
     Dosage: STARTED 10 YEARS AGO
     Route: 042
  5. REMICADE [Suspect]
     Indication: PSORIATIC ARTHROPATHY
     Dosage: 7 UNITS
     Route: 042
     Dates: start: 2012
  6. REMICADE [Suspect]
     Indication: PSORIATIC ARTHROPATHY
     Route: 042
     Dates: start: 2013, end: 2013
  7. REMICADE [Suspect]
     Indication: RHEUMATOID ARTHRITIS
     Dosage: STARTED 10 YEARS AGO
     Route: 042
  8. REMICADE [Suspect]
     Indication: RHEUMATOID ARTHRITIS
     Route: 042
     Dates: start: 2013, end: 2013
  9. REMICADE [Suspect]
     Indication: RHEUMATOID ARTHRITIS
     Dosage: 7 UNITS
     Route: 042
     Dates: start: 2012
  10. DECADRON [Suspect]
     Indication: PRODUCT USED FOR UNKNOWN INDICATION
     Route: 065
  11. CYMBALTA [Concomitant]
     Indication: PAIN
     Route: 048
     Dates: start: 2012
  12. AMBIEN [Concomitant]
     Indication: SLEEP DISORDER
     Route: 048
  13. HYDROCHLOROTHIAZIDE [Concomitant]
     Indication: FLUID RETENTION
     Route: 048
     Dates: start: 2013
  14. HYDROCHLOROTHIAZIDE [Concomitant]
     Indication: FLUID RETENTION
     Route: 048
     Dates: end: 2013

REACTIONS (11)
  - Spinal column stenosis [Not Recovered/Not Resolved]
  - Intervertebral disc protrusion [Not Recovered/Not Resolved]
  - Psoriatic arthropathy [Not Recovered/Not Resolved]
  - Psychomotor hyperactivity [Unknown]
  - Condition aggravated [Recovered/Resolved]
  - Back pain [Not Recovered/Not Resolved]
  - Abnormal behaviour [Unknown]
  - Dizziness [Unknown]
  - Lethargy [Unknown]
  - Migraine [Recovered/Resolved]
  - Drug effect decreased [Recovered/Resolved]
